FAERS Safety Report 14562023 (Version 1)
Quarter: 2018Q1

REPORT INFORMATION
  Report Type: Spontaneous
  Country: DE (occurrence: DE)
  Receive Date: 20180222
  Receipt Date: 20180222
  Transmission Date: 20180509
  Serious: Yes (Other)
  Sender: FDA-Public Use
  Company Number: DE-TELIGENT, INC-IGIL20180089

PATIENT
  Age: 60 Year
  Sex: Male

DRUGS (1)
  1. CEFUROXIME SODIUM. [Suspect]
     Active Substance: CEFUROXIME SODIUM
     Indication: PREOPERATIVE CARE
     Dosage: UNKNOWN
     Route: 042

REACTIONS (10)
  - Hypotension [Unknown]
  - Arteriospasm coronary [Unknown]
  - Dysgeusia [Unknown]
  - Dyspnoea [Unknown]
  - Acute myocardial infarction [Recovered/Resolved]
  - Kounis syndrome [Recovered/Resolved]
  - Burning sensation [Unknown]
  - Flushing [Unknown]
  - Chest pain [Unknown]
  - Anaphylactic reaction [Recovered/Resolved]
